FAERS Safety Report 11768111 (Version 1)
Quarter: 2015Q4

REPORT INFORMATION
  Report Type: Spontaneous
  Country: US (occurrence: US)
  Receive Date: 20151123
  Receipt Date: 20151123
  Transmission Date: 20160304
  Serious: No
  Sender: FDA-Public Use
  Company Number: US-JNJFOC-20151001327

PATIENT
  Age: 4 Decade
  Sex: Male
  Weight: 63.5 kg

DRUGS (1)
  1. INVEGA TRINZA [Suspect]
     Active Substance: PALIPERIDONE PALMITATE
     Indication: PRODUCT USED FOR UNKNOWN INDICATION
     Route: 030
     Dates: start: 201509

REACTIONS (2)
  - Device malfunction [Unknown]
  - Drug administration error [Unknown]

NARRATIVE: CASE EVENT DATE: 201509
